FAERS Safety Report 4301439-5 (Version None)
Quarter: 2004Q1

REPORT INFORMATION
  Report Type: 
  Country: None (occurrence: None)
  Receive Date: 20040219
  Receipt Date: 20040210
  Transmission Date: 20041129
  Serious: Yes (Hospitalization)
  Sender: FDA-Public Use
  Company Number: HQWYE878810FEB04

PATIENT
  Age: 33 Year
  Sex: Female

DRUGS (5)
  1. ESANBUTOL (ETHAMBUTOL, TABLET) [Suspect]
     Indication: LYMPH NODE TUBERCULOSIS
     Dosage: 750 MG/DAY ORAL
     Route: 048
     Dates: start: 20031203, end: 20040130
  2. ISCOTIN (ISONIAZAD) [Concomitant]
  3. RIMACTANE [Concomitant]
  4. PYRAMIDE (PYRAXINAMIDE0 [Concomitant]
  5. PYDOXAL (PYRIDOXAL PHOSPHATE) [Concomitant]

REACTIONS (5)
  - ALANINE AMINOTRANSFERASE INCREASED [None]
  - ASPARTATE AMINOTRANSFERASE INCREASED [None]
  - BLOOD LACTATE DEHYDROGENASE INCREASED [None]
  - LIVER DISORDER [None]
  - MALAISE [None]
